FAERS Safety Report 23865305 (Version 1)
Quarter: 2024Q2

REPORT INFORMATION
  Report Type: Report from Study
  Country: US (occurrence: US)
  Receive Date: 20240517
  Receipt Date: 20240517
  Transmission Date: 20240716
  Serious: Yes (Other)
  Sender: FDA-Public Use
  Company Number: US-JNJFOC-20230805777

PATIENT
  Sex: Male

DRUGS (1)
  1. TECVAYLI [Suspect]
     Active Substance: TECLISTAMAB-CQYV
     Indication: Product used for unknown indication
     Route: 065

REACTIONS (7)
  - Cytokine release syndrome [Unknown]
  - Transient acantholytic dermatosis [Unknown]
  - Nervous system disorder [Unknown]
  - Immune system disorder [Unknown]
  - Fatigue [Unknown]
  - Somnolence [Unknown]
  - Injection site erythema [Unknown]
